FAERS Safety Report 4642148-2 (Version None)
Quarter: 2005Q2

REPORT INFORMATION
  Report Type: 
  Country: None (occurrence: None)
  Receive Date: 20050421
  Receipt Date: 20050407
  Transmission Date: 20051028
  Serious: Yes (Death)
  Sender: FDA-Public Use
  Company Number: 2005S1001906

PATIENT
  Age: 41 Year
  Sex: Female

DRUGS (2)
  1. CLOZAPINE [Suspect]
     Dosage: 25 MG
     Dates: end: 20050301
  2. CLOZAPINE [Suspect]
     Dosage: 100 MG
     Dates: end: 20050301

REACTIONS (1)
  - DEATH [None]
